FAERS Safety Report 7116672-7 (Version None)
Quarter: 2010Q4

REPORT INFORMATION
  Report Type: 
  Country: None (occurrence: None)
  Receive Date: 20101122
  Receipt Date: 20101111
  Transmission Date: 20110411
  Serious: Yes (Other)
  Sender: FDA-Public Use
  Company Number: B0674025A

PATIENT
  Sex: Male
  Weight: 62 kg

DRUGS (8)
  1. ZOVIRAX [Suspect]
     Indication: HERPES ZOSTER
     Dosage: 750MG PER DAY
     Route: 042
     Dates: start: 20100902, end: 20100904
  2. ZOVIRAX [Suspect]
     Dosage: 250MG PER DAY
     Route: 042
     Dates: start: 20100905, end: 20100908
  3. BAKTAR [Concomitant]
     Dosage: 1IUAX PER DAY
     Route: 048
  4. ITRIZOLE [Concomitant]
     Route: 048
  5. CORTRIL [Concomitant]
     Dosage: 20MG PER DAY
     Route: 048
  6. ISCOTIN [Concomitant]
     Route: 048
  7. PARIET [Concomitant]
     Dosage: 10MG PER DAY
     Route: 048
  8. BARACLUDE [Concomitant]
     Dosage: .5MG PER DAY
     Route: 048

REACTIONS (3)
  - AGITATION [None]
  - DELIRIUM [None]
  - HALLUCINATION [None]
